FAERS Safety Report 6190300-X (Version None)
Quarter: 2009Q2

REPORT INFORMATION
  Report Type: 
  Country: None (occurrence: None)
  Receive Date: 20090514
  Receipt Date: 20090508
  Transmission Date: 20091009
  Serious: Yes (Other)
  Sender: FDA-Public Use
  Company Number: A0783210A

PATIENT
  Sex: Male

DRUGS (3)
  1. BUPROPION HYDROCHLORIDE [Suspect]
     Dosage: 150MG TWICE PER DAY
     Route: 048
     Dates: end: 20080101
  2. ABILIFY [Suspect]
     Dosage: 20MG PER DAY
     Route: 048
  3. LAMICTAL [Concomitant]
     Dosage: 125MG UNKNOWN
     Route: 048

REACTIONS (3)
  - DRUG INTERACTION [None]
  - ILL-DEFINED DISORDER [None]
  - PSYCHOTIC DISORDER [None]
